FAERS Safety Report 23339173 (Version 2)
Quarter: 2025Q4

REPORT INFORMATION
  Report Type: Spontaneous
  Country: EU (occurrence: EU)
  Receive Date: 20231226
  Receipt Date: 20251103
  Transmission Date: 20260117
  Serious: Yes (Hospitalization)
  Sender: ABBVIE
  Company Number: EU-ABBVIE-5556470

PATIENT
  Age: 29 Year
  Sex: Male

DRUGS (2)
  1. RINVOQ [Suspect]
     Active Substance: UPADACITINIB
     Indication: Dermatitis atopic
     Route: 048
     Dates: start: 20230103, end: 20240304
  2. AMPHOTERICIN B [Concomitant]
     Active Substance: AMPHOTERICIN B
     Indication: Product used for unknown indication
     Dosage: DOSE FORM: LOZENGES TABLET, FREQUENCY: 1-1-1-1
     Route: 048
     Dates: start: 20230103, end: 20230125

REACTIONS (10)
  - Hospitalisation [Unknown]
  - Gamma-glutamyltransferase increased [Unknown]
  - Erythema [Unknown]
  - Red blood cell count decreased [Unknown]
  - Acne [Unknown]
  - Lymphomatoid papulosis [Unknown]
  - Papule [Unknown]
  - Skin infection [Recovering/Resolving]
  - Hyperkeratosis [Recovering/Resolving]
  - Rash papular [Recovering/Resolving]

NARRATIVE: CASE EVENT DATE: 20230101
